FAERS Safety Report 25683923 (Version 3)
Quarter: 2025Q3

REPORT INFORMATION
  Report Type: Report from Study
  Country: US (occurrence: US)
  Receive Date: 20250815
  Receipt Date: 20250902
  Transmission Date: 20251020
  Serious: Yes (Hospitalization)
  Sender: ABBVIE
  Company Number: US-ABBVIE-6375360

PATIENT
  Age: 72 Year
  Sex: Female
  Weight: 87.996 kg

DRUGS (2)
  1. HUMIRA [Suspect]
     Active Substance: ADALIMUMAB
     Indication: Rheumatoid arthritis
     Dosage: START DATE TEXT: MORE THAN 2 YEARS
     Route: 058
     Dates: end: 20250524
  2. HUMIRA [Suspect]
     Active Substance: ADALIMUMAB
     Route: 058
     Dates: start: 2025

REACTIONS (14)
  - Hip arthroplasty [Recovered/Resolved]
  - Arthritis [Unknown]
  - Fall [Unknown]
  - Groin pain [Not Recovered/Not Resolved]
  - Osteoarthritis [Unknown]
  - Muscle spasms [Unknown]
  - Sciatic nerve neuropathy [Unknown]
  - Arthralgia [Recovered/Resolved]
  - Gait disturbance [Not Recovered/Not Resolved]
  - Arthropathy [Recovered/Resolved]
  - Gait disturbance [Recovered/Resolved]
  - Pruritus [Unknown]
  - Back pain [Unknown]
  - Movement disorder [Unknown]

NARRATIVE: CASE EVENT DATE: 20240101
